FAERS Safety Report 4299729-8 (Version None)
Quarter: 2004Q1

REPORT INFORMATION
  Report Type: 
  Country: None (occurrence: None)
  Receive Date: 20040126
  Receipt Date: 20031114
  Transmission Date: 20041129
  Serious: No
  Sender: FDA-Public Use
  Company Number: USA031152650

PATIENT
  Age: 48 Year
  Sex: Female
  Weight: 68 kg

DRUGS (12)
  1. STRATTERA [Suspect]
     Indication: DISTURBANCE IN ATTENTION
     Dosage: 10 MG/2 DAY
     Dates: start: 20031112, end: 20031113
  2. STRATTERA [Suspect]
     Indication: NERVOUSNESS
     Dosage: 10 MG/2 DAY
     Dates: start: 20031112, end: 20031113
  3. PAXIL [Concomitant]
  4. CYTONEL (LIOTHYRONINE SODIUM) [Concomitant]
  5. LOPRESSOR [Concomitant]
  6. CLONIDINE [Concomitant]
  7. URECHOLINE (BETHANECHOL CHLORIDE) [Concomitant]
  8. VALIUM [Concomitant]
  9. ATIVAN [Concomitant]
  10. ATARAX [Concomitant]
  11. MIRALAX [Concomitant]
  12. MELLARIL [Concomitant]

REACTIONS (3)
  - ANURIA [None]
  - CONFUSIONAL STATE [None]
  - URINARY HESITATION [None]
